FAERS Safety Report 7551695-5 (Version None)
Quarter: 2011Q2

REPORT INFORMATION
  Report Type: 
  Country: None (occurrence: None)
  Receive Date: 20110616
  Receipt Date: 20110607
  Transmission Date: 20111010
  Serious: Yes (Death, Other)
  Sender: FDA-Public Use
  Company Number: JP-ASTRAZENECA-2011SE34744

PATIENT
  Age: 78 Year
  Sex: Male

DRUGS (6)
  1. GEFITINIB [Suspect]
     Indication: NON-SMALL CELL LUNG CANCER
     Route: 048
  2. GEFITINIB [Suspect]
     Route: 048
  3. CARBOPLATIN [Concomitant]
     Indication: NON-SMALL CELL LUNG CANCER
  4. GRANULOCYTE COLONY STIMULATING FACTOR [Concomitant]
     Indication: NON-SMALL CELL LUNG CANCER
  5. PACLITAXEL [Concomitant]
     Indication: NON-SMALL CELL LUNG CANCER
  6. BEVACIZUMAB [Concomitant]
     Indication: NON-SMALL CELL LUNG CANCER

REACTIONS (2)
  - MULTIPLE MYELOMA [None]
  - HEPATOTOXICITY [None]
